FAERS Safety Report 14158661 (Version 1)
Quarter: 2017Q4

REPORT INFORMATION
  Report Type: Spontaneous
  Country: BR (occurrence: BR)
  Receive Date: 20171103
  Receipt Date: 20171103
  Transmission Date: 20180321
  Serious: Yes (Death, Other)
  Sender: FDA-Public Use
  Company Number: BR-HORIZON-ACT-0325-2017

PATIENT
  Sex: Male

DRUGS (1)
  1. IMUKIN [Suspect]
     Active Substance: INTERFERON GAMMA
     Indication: CHRONIC GRANULOMATOUS DISEASE
     Route: 058

REACTIONS (5)
  - Drug ineffective [Unknown]
  - Cytomegalovirus infection [Fatal]
  - Central nervous system fungal infection [Fatal]
  - Pneumonia [Unknown]
  - Anal abscess [Unknown]
